FAERS Safety Report 4647464-6 (Version None)
Quarter: 2005Q2

REPORT INFORMATION
  Report Type: 
  Country: None (occurrence: None)
  Receive Date: 20050426
  Receipt Date: 20050405
  Transmission Date: 20051028
  Serious: Yes (Other)
  Sender: FDA-Public Use
  Company Number: CA_050407981

PATIENT
  Age: 70 Year
  Sex: Male

DRUGS (6)
  1. PERMAX [Suspect]
     Dosage: 0.5 MG/3 DAY
  2. AMANTADINE HCL [Concomitant]
  3. FLUOXETINE [Concomitant]
  4. LORAZEPAM [Concomitant]
  5. SINEMET CR [Concomitant]
  6. WARFARIN SODIUM [Concomitant]

REACTIONS (2)
  - ENDOCARDIAL FIBROSIS [None]
  - MITRAL VALVE STENOSIS [None]
